FAERS Safety Report 8129046-7 (Version None)
Quarter: 2012Q1

REPORT INFORMATION
  Report Type: 
  Country: None (occurrence: None)
  Receive Date: 20120210
  Receipt Date: 20110818
  Transmission Date: 20120608
  Serious: No
  Sender: FDA-Public Use
  Company Number: US-BRISTOL-MYERS SQUIBB COMPANY-15983299

PATIENT
  Age: 39 Year
  Sex: Female

DRUGS (3)
  1. LEVOTHYROXINE SODIUM [Concomitant]
  2. ORENCIA [Suspect]
     Dates: start: 20110815
  3. METHOTREXATE [Concomitant]

REACTIONS (1)
  - RASH [None]
